FAERS Safety Report 4711190-5 (Version None)
Quarter: 2005Q3

REPORT INFORMATION
  Report Type: 
  Country: None (occurrence: None)
  Receive Date: 20050711
  Receipt Date: 20050629
  Transmission Date: 20060218
  Serious: Yes (Other)
  Sender: FDA-Public Use
  Company Number: 200515472US

PATIENT
  Sex: Female

DRUGS (4)
  1. LANTUS [Suspect]
     Indication: DIABETES MELLITUS INSULIN-DEPENDENT
     Dosage: DOSE UNIT: UNITS
     Route: 051
     Dates: start: 20050301
  2. METFORMIN [Suspect]
     Route: 048
     Dates: start: 20050501, end: 20050627
  3. PREMARIN [Concomitant]
     Route: 048
  4. PRILOSEC [Concomitant]
     Route: 048

REACTIONS (6)
  - BURNING SENSATION [None]
  - ERYTHEMA [None]
  - PAIN [None]
  - PAIN IN EXTREMITY [None]
  - SKIN IRRITATION [None]
  - VULVITIS [None]
